APPROVED DRUG PRODUCT: METFORMIN HYDROCHLORIDE
Active Ingredient: METFORMIN HYDROCHLORIDE
Strength: 750MG
Dosage Form/Route: TABLET, EXTENDED RELEASE;ORAL
Application: A079226 | Product #001
Applicant: TORRENT PHARMACEUTICALS LTD
Approved: Feb 18, 2010 | RLD: No | RS: No | Type: DISCN